FAERS Safety Report 8797589 (Version 1)
Quarter: 2012Q4

REPORT INFORMATION
  Report Type: 
  Country: US (occurrence: US)
  Receive Date: 20120920
  Receipt Date: 20120920
  Transmission Date: 20130627
  Serious: Yes (Hospitalization)
  Sender: FDA-Public Use
  Company Number: US-009507513-1209USA003196

PATIENT
  Sex: Male

DRUGS (4)
  1. ISENTRESS [Suspect]
     Dosage: 400 mg, bid
     Route: 048
  2. EPIVIR [Suspect]
     Dosage: 150 mg, qd
     Route: 048
  3. ADCIRCA [Suspect]
     Route: 048
  4. VIREAD [Suspect]
     Dosage: 245 mg, every 3 days
     Route: 048

REACTIONS (8)
  - Dyspnoea [Unknown]
  - Tachycardia [Unknown]
  - Skin exfoliation [Unknown]
  - General physical health deterioration [Unknown]
  - Pruritus [Unknown]
  - Neutropenia [Unknown]
  - Rash [Unknown]
  - Anaemia [Unknown]
